FAERS Safety Report 19986671 (Version 1)
Quarter: 2021Q4

REPORT INFORMATION
  Report Type: Spontaneous
  Country: US (occurrence: US)
  Receive Date: 20211022
  Receipt Date: 20211022
  Transmission Date: 20220303
  Serious: Yes (Other)
  Sender: FDA-Public Use
  Company Number: 2021A783277

PATIENT
  Age: 75 Year
  Sex: Male

DRUGS (7)
  1. OLAPARIB [Suspect]
     Active Substance: OLAPARIB
     Indication: Hormone-refractory prostate cancer
     Route: 065
     Dates: start: 20200918
  2. BICALUTAMIDE [Concomitant]
     Active Substance: BICALUTAMIDE
     Dates: start: 20190821
  3. LUPRON [Concomitant]
     Active Substance: LEUPROLIDE ACETATE
     Dates: start: 20190917
  4. DOCETAXEL [Concomitant]
     Active Substance: DOCETAXEL
     Dosage: 75MG/M2
  5. PREDNISONE [Concomitant]
     Active Substance: PREDNISONE
     Dosage: CHAARTED ON 11/7/19 - 2/25/20
  6. ABIRATERONE. [Concomitant]
     Active Substance: ABIRATERONE ACETATE
     Dates: start: 20200607, end: 20201001
  7. CABAZITAXEL [Concomitant]
     Active Substance: CABAZITAXEL
     Dosage: 20MG/M2
     Dates: start: 20210518

REACTIONS (5)
  - Malignant neoplasm progression [Unknown]
  - Feeling abnormal [Unknown]
  - Fatigue [Unknown]
  - Decreased appetite [Unknown]
  - Diarrhoea [Unknown]
